FAERS Safety Report 13456910 (Version 1)
Quarter: 2017Q2

REPORT INFORMATION
  Report Type: Spontaneous
  Country: BR (occurrence: BR)
  Receive Date: 20170419
  Receipt Date: 20170419
  Transmission Date: 20170830
  Serious: Yes (Other)
  Sender: FDA-Public Use
  Company Number: BR-JNJFOC-20170418396

PATIENT
  Sex: Female

DRUGS (3)
  1. LOSARTAN. [Concomitant]
     Active Substance: LOSARTAN
     Indication: HYPERTENSION
     Route: 065
  2. XARELTO [Suspect]
     Active Substance: RIVAROXABAN
     Indication: OEDEMA DUE TO CARDIAC DISEASE
     Route: 048
     Dates: start: 20170110, end: 20170114
  3. XARELTO [Suspect]
     Active Substance: RIVAROXABAN
     Indication: CARDIAC FIBRILLATION
     Route: 048
     Dates: start: 20170110, end: 20170114

REACTIONS (8)
  - Headache [Recovering/Resolving]
  - Oedema [Recovering/Resolving]
  - Abdominal pain upper [Recovering/Resolving]
  - Hypophagia [Recovering/Resolving]
  - Cardiomegaly [Recovering/Resolving]
  - Dyspnoea [Recovering/Resolving]
  - Off label use [Unknown]
  - Bradycardia [Recovering/Resolving]
